FAERS Safety Report 9098123 (Version 1)
Quarter: 2013Q1

REPORT INFORMATION
  Report Type: Spontaneous
  Country: TH (occurrence: TH)
  Receive Date: 20130213
  Receipt Date: 20130213
  Transmission Date: 20140127
  Serious: Yes (Death)
  Sender: FDA-Public Use
  Company Number: PHHY2013TH013781

PATIENT
  Age: 78 Year
  Sex: Female

DRUGS (4)
  1. ZOMETA [Suspect]
     Indication: METASTASES TO BONE
     Dosage: 4 MG,PER TIME PER MONTH
     Route: 041
  2. ZOMETA [Suspect]
     Dosage: 4 MG,PER TIME PER MONTH
     Route: 041
  3. ZOMETA [Suspect]
     Dosage: 4 MG,PER TIME PER MONTH
     Route: 041
  4. CHEMOTHERAPEUTICS [Concomitant]
     Route: 048

REACTIONS (5)
  - Breast cancer [Fatal]
  - Metastases to bone [Fatal]
  - Sepsis [Fatal]
  - Alopecia [Unknown]
  - Nail discolouration [Unknown]
